FAERS Safety Report 4864039-4 (Version None)
Quarter: 2005Q4

REPORT INFORMATION
  Report Type: 
  Country: None (occurrence: None)
  Receive Date: 20051219
  Receipt Date: 20051206
  Transmission Date: 20060501
  Serious: Yes (Hospitalization, Other)
  Sender: FDA-Public Use
  Company Number: 2005165348

PATIENT
  Sex: Female

DRUGS (1)
  1. RELPAX [Suspect]
     Indication: MIGRAINE
     Dosage: 1 TABLET (1 D)
     Dates: start: 20010101, end: 20051201

REACTIONS (2)
  - HEADACHE [None]
  - STATUS MIGRAINOSUS [None]
